FAERS Safety Report 9160261 (Version 3)
Quarter: 2013Q2

REPORT INFORMATION
  Report Type: Spontaneous
  Country: US (occurrence: US)
  Receive Date: 20130313
  Receipt Date: 20130520
  Transmission Date: 20140414
  Serious: Yes (Disabling, Other)
  Sender: FDA-Public Use
  Company Number: US-CELGENEUS-163-21880-13022998

PATIENT
  Age: 72 Year
  Sex: Male
  Weight: 88.53 kg

DRUGS (35)
  1. REVLIMID [Suspect]
     Indication: PLASMA CELL MYELOMA
     Dosage: 25 MILLIGRAM
     Route: 048
     Dates: start: 20111213
  2. REVLIMID [Suspect]
     Dosage: 15 MILLIGRAM
     Route: 048
     Dates: start: 201201, end: 20130131
  3. REVLIMID [Suspect]
     Dosage: 15 MILLIGRAM
     Route: 048
  4. OXAZEPAM [Interacting]
     Indication: PRODUCT USED FOR UNKNOWN INDICATION
     Dosage: 15 MILLIGRAM
     Route: 048
     Dates: start: 20120720
  5. ASPIRIN [Interacting]
     Indication: PRODUCT USED FOR UNKNOWN INDICATION
     Dosage: 325 MILLIGRAM
     Route: 048
     Dates: start: 20120424
  6. REFRESH [Interacting]
     Indication: PRODUCT USED FOR UNKNOWN INDICATION
     Dosage: .5 PERCENT
     Route: 047
  7. REFRESH [Interacting]
     Route: 047
  8. HYDROCHLOROTHIAZIDE [Interacting]
     Indication: PRODUCT USED FOR UNKNOWN INDICATION
     Dosage: 12.5 MILLIGRAM
     Route: 048
  9. FLONASE [Interacting]
     Indication: PRODUCT USED FOR UNKNOWN INDICATION
     Dosage: .1 PERCENT
     Route: 045
  10. OMEPRAZOLE [Interacting]
     Indication: PRODUCT USED FOR UNKNOWN INDICATION
     Dosage: 20 MILLIGRAM
     Route: 048
  11. SUDAFED [Interacting]
     Indication: PRODUCT USED FOR UNKNOWN INDICATION
     Dosage: 30 MILLIGRAM
     Route: 048
  12. TUMS [Interacting]
     Indication: PRODUCT USED FOR UNKNOWN INDICATION
     Dosage: 500 MILLIGRAM
     Route: 048
  13. XANAX [Interacting]
     Indication: PRODUCT USED FOR UNKNOWN INDICATION
     Dosage: .5 MILLIGRAM
     Route: 048
  14. XANAX [Interacting]
     Dosage: 1 MILLIGRAM
     Route: 065
  15. ZOLPIDEM [Interacting]
     Indication: PRODUCT USED FOR UNKNOWN INDICATION
     Dosage: 10 MILLIGRAM
     Route: 048
  16. MULTIMAX [Interacting]
     Indication: PRODUCT USED FOR UNKNOWN INDICATION
     Route: 048
  17. CITALOPRAM HYDROBROMIDE [Interacting]
     Indication: PRODUCT USED FOR UNKNOWN INDICATION
     Dosage: 20 MILLIGRAM
     Route: 048
  18. SYNTHROID [Interacting]
     Indication: PRODUCT USED FOR UNKNOWN INDICATION
     Dosage: 125 MICROGRAM
     Route: 048
  19. ZITHROMAX [Interacting]
     Indication: PRODUCT USED FOR UNKNOWN INDICATION
     Dosage: 250 MILLIGRAM
     Route: 048
  20. VELCADE [Interacting]
     Indication: PRODUCT USED FOR UNKNOWN INDICATION
     Dosage: 3.5 MILLIGRAM
     Route: 065
  21. HYDROCO/APAP [Interacting]
     Indication: PRODUCT USED FOR UNKNOWN INDICATION
     Dosage: 5-500MG
     Route: 048
  22. HYDROCO/APAP [Interacting]
     Dosage: 5-325MG
     Route: 048
  23. DEXAMETHASONE [Interacting]
     Indication: PRODUCT USED FOR UNKNOWN INDICATION
     Dosage: 4 MILLIGRAM
     Route: 048
  24. DEXAMETHASONE [Interacting]
     Dosage: 2 MILLIGRAM
     Route: 048
  25. DIOVAN [Interacting]
     Indication: PRODUCT USED FOR UNKNOWN INDICATION
     Dosage: 320 MILLIGRAM
     Route: 048
  26. CEPHALEXIN [Concomitant]
     Indication: PRODUCT USED FOR UNKNOWN INDICATION
     Dosage: 10 ML OF 250MG/5ML
     Route: 048
  27. CEPHALEXIN [Concomitant]
     Indication: OROPHARYNGEAL PAIN
     Route: 048
  28. LEVOTHYROXINE SODIUM [Concomitant]
     Indication: PRODUCT USED FOR UNKNOWN INDICATION
     Dosage: 125 MICROGRAM
     Route: 048
  29. NYSTATIN [Concomitant]
     Indication: PRODUCT USED FOR UNKNOWN INDICATION
     Dosage: 5 ML OF 100000 UNITS/ML
     Route: 048
  30. OXYCODONE HCL [Concomitant]
     Indication: PRODUCT USED FOR UNKNOWN INDICATION
     Dosage: 40 MILLIGRAM
     Route: 048
  31. ZOMETA [Concomitant]
     Indication: PRODUCT USED FOR UNKNOWN INDICATION
     Route: 065
  32. DIFLUCAN [Concomitant]
     Indication: TONGUE ULCERATION
     Dosage: 100 MILLIGRAM
     Route: 065
  33. DIFLUCAN [Concomitant]
     Indication: OROPHARYNGEAL PAIN
     Route: 065
  34. KEFLEX [Concomitant]
     Indication: LARYNGITIS
     Dosage: 2000 MILLIGRAM
     Route: 048
  35. KEFLEX [Concomitant]
     Indication: TONGUE ULCERATION
     Route: 048

REACTIONS (9)
  - Osteonecrosis [Not Recovered/Not Resolved]
  - Rotator cuff syndrome [Unknown]
  - Skin exfoliation [Recovered/Resolved]
  - Mucosal inflammation [Recovered/Resolved]
  - Laryngitis [Recovered/Resolved]
  - Plantar erythema [Recovering/Resolving]
  - Hypoaesthesia [Recovering/Resolving]
  - Candida infection [Recovered/Resolved]
  - Furuncle [Recovering/Resolving]
